FAERS Safety Report 8447123-8 (Version None)
Quarter: 2012Q2

REPORT INFORMATION
  Report Type: 
  Country: None (occurrence: None)
  Receive Date: 20120612
  Receipt Date: 20120531
  Transmission Date: 20120825
  Serious: Yes (Other)
  Sender: FDA-Public Use
  Company Number: AXC-2012-000257

PATIENT
  Age: 48 Year
  Sex: Male

DRUGS (2)
  1. NITROGLYN 2% OINTMENT [Suspect]
     Indication: PRODUCT USED FOR UNKNOWN INDICATION
     Dosage: UNK, TOPICAL
     Route: 061
     Dates: start: 20120513, end: 20120518
  2. NITROGLYN 2% OINTMENT [Suspect]
     Indication: PRODUCT USED FOR UNKNOWN INDICATION
     Dosage: UNK, TOPICAL
     Route: 061
     Dates: start: 20120519, end: 20120523

REACTIONS (3)
  - ALANINE AMINOTRANSFERASE INCREASED [None]
  - HEADACHE [None]
  - PYREXIA [None]
